FAERS Safety Report 8806171 (Version 1)
Quarter: 2012Q4

REPORT INFORMATION
  Report Type: 
  Country: US (occurrence: None)
  Receive Date: 20120919
  Receipt Date: 20120919
  Transmission Date: 20130627
  Serious: Yes (Other)
  Sender: FDA-Public Use
  Company Number: None

PATIENT
  Age: 31 Year
  Sex: Male
  Weight: 127 kg

DRUGS (1)
  1. VANCOMYCIN [Suspect]
     Indication: OSTEOMYELITIS
     Dosage: 1000mg q 8 hours IV
     Route: 042
     Dates: start: 20110907, end: 20120911

REACTIONS (5)
  - Chest discomfort [None]
  - Dyspnoea [None]
  - Neck pain [None]
  - Groin pain [None]
  - Hypersensitivity [None]
